FAERS Safety Report 17270467 (Version 1)
Quarter: 2020Q1

REPORT INFORMATION
  Report Type: Not Available
  Country: US (occurrence: US)
  Receive Date: 20200114
  Receipt Date: 20200114
  Transmission Date: 20200409
  Serious: No
  Sender: FDA-Public Use
  Company Number: US-NEUROCRINE BIOSCIENCES INC.-2020NBI00056

PATIENT
  Age: 51 Year
  Sex: Female

DRUGS (7)
  1. RANITIDINE. [Concomitant]
     Active Substance: RANITIDINE
     Route: 048
  2. HYDROCODONE BITARTRATE AND ACETAMINOPHEN [Concomitant]
     Active Substance: ACETAMINOPHEN\HYDROCODONE BITARTRATE
     Route: 048
  3. LITHIUM. [Concomitant]
     Active Substance: LITHIUM
     Route: 048
  4. INGREZZA [Suspect]
     Active Substance: VALBENAZINE
     Route: 048
     Dates: start: 201912
  5. DOXEPINE [Concomitant]
     Active Substance: DOXEPIN
     Route: 048
  6. INGREZZA [Suspect]
     Active Substance: VALBENAZINE
     Indication: TARDIVE DYSKINESIA
     Route: 048
  7. RISPERDAL [Concomitant]
     Active Substance: RISPERIDONE

REACTIONS (1)
  - Drooling [Unknown]

NARRATIVE: CASE EVENT DATE: 201912
